FAERS Safety Report 14343898 (Version 1)
Quarter: 2017Q4

REPORT INFORMATION
  Report Type: Spontaneous
  Country: US (occurrence: US)
  Receive Date: 20171229
  Receipt Date: 20171229
  Transmission Date: 20180321
  Serious: Yes (Other)
  Sender: FDA-Public Use
  Company Number: None

PATIENT
  Age: 77 Year
  Sex: Male

DRUGS (11)
  1. NORTHERA [Suspect]
     Active Substance: DROXIDOPA
     Indication: ORTHOSTATIC HYPOTENSION
     Route: 048
  2. FEXOFENADINE [Concomitant]
     Active Substance: FEXOFENADINE\FEXOFENADINE HYDROCHLORIDE
  3. HFA AER [Concomitant]
  4. NAPROXEN. [Concomitant]
     Active Substance: NAPROXEN
  5. HUMALOG [Concomitant]
     Active Substance: INSULIN LISPRO
  6. ALLEGRA [Concomitant]
     Active Substance: FEXOFENADINE HYDROCHLORIDE
  7. VENTOLIN [Concomitant]
     Active Substance: ALBUTEROL SULFATE
  8. PYRIDOSTIGM [Concomitant]
  9. NORTHERA [Suspect]
     Active Substance: DROXIDOPA
     Route: 048
  10. TAMSULSIN [Concomitant]
  11. RANITIDINE. [Concomitant]
     Active Substance: RANITIDINE

REACTIONS (1)
  - Hypotension [None]
